FAERS Safety Report 8646345 (Version 2)
Quarter: 2012Q4

REPORT INFORMATION
  Report Type: 
  Country: US (occurrence: US)
  Receive Date: 20120702
  Receipt Date: 20121119
  Transmission Date: 20130627
  Serious: Yes (Hospitalization)
  Sender: FDA-Public Use
  Company Number: US-GILEAD-2012-0057325

PATIENT
  Age: 67 Year
  Sex: Female

DRUGS (1)
  1. LETAIRIS [Suspect]
     Indication: PRODUCT USED FOR UNKNOWN INDICATION
     Dosage: 10 mg, QD
     Route: 048
     Dates: start: 20090609

REACTIONS (4)
  - Fall [Not Recovered/Not Resolved]
  - Venous injury [Unknown]
  - Adverse drug reaction [Unknown]
  - Accident [Unknown]
